FAERS Safety Report 12793248 (Version 1)
Quarter: 2016Q3

REPORT INFORMATION
  Report Type: Spontaneous
  Country: US (occurrence: US)
  Receive Date: 20160928
  Receipt Date: 20160928
  Transmission Date: 20161109
  Serious: No
  Sender: FDA-Public Use
  Company Number: None

PATIENT
  Age: 52 Year
  Sex: Male

DRUGS (1)
  1. TESTOPEL [Suspect]
     Active Substance: TESTOSTERONE
     Indication: TESTICULAR FAILURE

REACTIONS (1)
  - Implant site reaction [None]

NARRATIVE: CASE EVENT DATE: 2016
